FAERS Safety Report 6173573-9 (Version None)
Quarter: 2009Q2

REPORT INFORMATION
  Report Type: 
  Country: None (occurrence: None)
  Receive Date: 20090430
  Receipt Date: 20090429
  Transmission Date: 20091009
  Serious: Yes (Death)
  Sender: FDA-Public Use
  Company Number: D0061455A

PATIENT
  Age: 73 Year
  Sex: Female

DRUGS (6)
  1. FRAXIPARIN [Suspect]
     Indication: THROMBOSIS PROPHYLAXIS
     Dosage: .3ML UNKNOWN
     Route: 058
     Dates: start: 20090101
  2. ARIXTRA [Suspect]
     Indication: THROMBOSIS PROPHYLAXIS
     Dosage: 7.5MG UNKNOWN
     Route: 058
     Dates: start: 20090101
  3. ACETYLCYSTEINE [Concomitant]
     Route: 048
  4. FORMOTEROL POWDER [Concomitant]
     Route: 055
  5. ARCOXIA [Concomitant]
     Route: 048
  6. IBUPROFEN [Concomitant]
     Route: 048

REACTIONS (1)
  - CEREBROVASCULAR ACCIDENT [None]
